FAERS Safety Report 7077573-6 (Version None)
Quarter: 2010Q4

REPORT INFORMATION
  Report Type: 
  Country: None (occurrence: None)
  Receive Date: 20101021
  Receipt Date: 20101005
  Transmission Date: 20110411
  Serious: Yes (Other)
  Sender: FDA-Public Use
  Company Number: 2010004503

PATIENT
  Age: 76 Year
  Sex: Female

DRUGS (10)
  1. TARCEVA [Suspect]
     Indication: NON-SMALL CELL LUNG CANCER
     Dosage: (150 MG,QD),ORAL ; (100 MG,QD),ORAL
     Route: 048
     Dates: start: 20071205, end: 20100610
  2. TARCEVA [Suspect]
     Indication: NON-SMALL CELL LUNG CANCER
     Dosage: (150 MG,QD),ORAL ; (100 MG,QD),ORAL
     Route: 048
     Dates: start: 20100624
  3. EZETROL [Concomitant]
  4. OMEPRAZOLE [Concomitant]
  5. SERLAIN (SERTRALINE) [Concomitant]
  6. XANAX [Concomitant]
  7. AERIUS [Concomitant]
  8. LISINOPRIL [Concomitant]
  9. RIFAMPIN (RIFAMPICIN) [Concomitant]
  10. DESLORATADINE [Concomitant]

REACTIONS (2)
  - BALANCE DISORDER [None]
  - RASH [None]
